FAERS Safety Report 9178112 (Version 1)
Quarter: 2013Q1

REPORT INFORMATION
  Report Type: Spontaneous
  Country: JP (occurrence: JP)
  Receive Date: 20130321
  Receipt Date: 20130321
  Transmission Date: 20140127
  Serious: Yes (Hospitalization)
  Sender: FDA-Public Use
  Company Number: JP-ASTRAZENECA-2013SE14037

PATIENT
  Age: 74 Year
  Sex: Male

DRUGS (7)
  1. CRESTOR [Suspect]
     Indication: HYPERCHOLESTEROLAEMIA
     Route: 048
     Dates: start: 20130215, end: 20130225
  2. WARFARIN [Suspect]
     Route: 048
     Dates: start: 20130122, end: 20130125
  3. WARFARIN [Suspect]
     Route: 048
     Dates: start: 20130126, end: 20130225
  4. WARFARIN [Suspect]
     Route: 065
  5. BAYASPIRIN [Concomitant]
     Route: 048
     Dates: start: 20130122
  6. GASPORT [Concomitant]
     Route: 065
  7. GASPORT [Concomitant]
     Route: 048
     Dates: start: 20130122

REACTIONS (5)
  - Haematuria [Recovered/Resolved]
  - Myalgia [Recovering/Resolving]
  - Blood creatine phosphokinase increased [Recovered/Resolved]
  - Subcutaneous haematoma [Unknown]
  - Asthenia [Unknown]
